FAERS Safety Report 10194006 (Version 1)
Quarter: 2014Q2

REPORT INFORMATION
  Report Type: Spontaneous
  Country: US (occurrence: US)
  Receive Date: 20140524
  Receipt Date: 20140524
  Transmission Date: 20141212
  Serious: No
  Sender: FDA-Public Use
  Company Number: US-SANOFI-AVENTIS-2013SA051024

PATIENT
  Age: 59 Year
  Sex: Female

DRUGS (4)
  1. LANTUS SOLOSTAR [Suspect]
     Dosage: IN MORNING DOSE:14 UNIT(S)
     Dates: start: 20130222
  2. LANTUS SOLOSTAR [Suspect]
     Dosage: IN MORNING DOSE:14 UNIT(S)
     Dates: start: 20130222
  3. SOLOSTAR [Suspect]
     Dates: start: 20130222
  4. HUMALOG [Concomitant]

REACTIONS (3)
  - Loss of consciousness [Unknown]
  - Nasal discomfort [Unknown]
  - Blood glucose increased [Unknown]
